FAERS Safety Report 26199684 (Version 1)
Quarter: 2025Q4

REPORT INFORMATION
  Report Type: Spontaneous
  Country: JP (occurrence: JP)
  Receive Date: 20251225
  Receipt Date: 20251225
  Transmission Date: 20260117
  Serious: Yes (Death)
  Sender: ROCHE
  Company Number: JP-CHUGAI-2025042554

PATIENT
  Age: 77 Year
  Sex: Female

DRUGS (1)
  1. ENSPRYNG [Suspect]
     Active Substance: SATRALIZUMAB-MWGE
     Indication: Neuromyelitis optica spectrum disorder
     Dosage: 120 MILLIGRAM, ONCE/2WEEKS
     Route: 058

REACTIONS (2)
  - Rash [Unknown]
  - Urinary tract infection [Fatal]

NARRATIVE: CASE EVENT DATE: 20230801
